FAERS Safety Report 4837429-3 (Version None)
Quarter: 2005Q4

REPORT INFORMATION
  Report Type: 
  Country: None (occurrence: None)
  Receive Date: 20051128
  Receipt Date: 20051118
  Transmission Date: 20060501
  Serious: Yes (Other)
  Sender: FDA-Public Use
  Company Number: FR-JNJFOC-20050902185

PATIENT
  Age: 29 Year
  Sex: Male

DRUGS (1)
  1. KETOCONAZOLE [Suspect]
     Indication: FUNGAL INFECTION
     Route: 061
     Dates: end: 20050801

REACTIONS (2)
  - ALANINE AMINOTRANSFERASE INCREASED [None]
  - ASPARTATE AMINOTRANSFERASE INCREASED [None]
